FAERS Safety Report 21102844 (Version 1)
Quarter: 2022Q3

REPORT INFORMATION
  Report Type: Spontaneous
  Country: DE (occurrence: DE)
  Receive Date: 20220720
  Receipt Date: 20220720
  Transmission Date: 20221027
  Serious: Yes (Other)
  Sender: FDA-Public Use
  Company Number: DE-SUN PHARMACEUTICAL INDUSTRIES LTD-2022R1-344701

PATIENT
  Age: 7 Year
  Sex: Female

DRUGS (1)
  1. UREA [Suspect]
     Active Substance: UREA
     Indication: Mosaicism
     Dosage: UNK
     Route: 061

REACTIONS (1)
  - Drug ineffective [Unknown]
